FAERS Safety Report 26057229 (Version 1)
Quarter: 2025Q4

REPORT INFORMATION
  Report Type: Spontaneous
  Country: US (occurrence: US)
  Receive Date: 20251118
  Receipt Date: 20251118
  Transmission Date: 20260117
  Serious: Yes (Death, Hospitalization, Other)
  Sender: RECORDATI
  Company Number: US-ORPHANEU-2025008123

PATIENT
  Age: 64 Year
  Sex: Male

DRUGS (10)
  1. OSILODROSTAT [Suspect]
     Active Substance: OSILODROSTAT
     Indication: Ectopic ACTH syndrome
     Dosage: 5 MG, QD (NIGHTLY)
  2. OSILODROSTAT [Suspect]
     Active Substance: OSILODROSTAT
     Indication: Prostate cancer metastatic
     Dosage: 5 MG, BID (DOSE INCREASED) (DAY 8)
  3. OSILODROSTAT [Suspect]
     Active Substance: OSILODROSTAT
     Dosage: 10 MG, BID (DOSE INCREASED) (DAY 19)
  4. OSILODROSTAT [Suspect]
     Active Substance: OSILODROSTAT
     Dosage: 15 MG QAM/10 MG QPM (DOSE INCREASED) (DAY 38)
  5. PREDNISONE [Concomitant]
     Active Substance: PREDNISONE
     Indication: Product used for unknown indication
     Dosage: 5 MG, DAILY
  6. SPIRONOLACTONE [Concomitant]
     Active Substance: SPIRONOLACTONE
     Indication: Product used for unknown indication
     Dosage: 50 MG, BID
  7. SULFAMETHOXAZOLE\TRIMETHOPRIM [Concomitant]
     Active Substance: SULFAMETHOXAZOLE\TRIMETHOPRIM
     Indication: Antifungal prophylaxis
  8. APIXABAN [Concomitant]
     Active Substance: APIXABAN
     Indication: Atrial flutter
  9. APIXABAN [Concomitant]
     Active Substance: APIXABAN
     Indication: Atrial fibrillation
  10. APIXABAN [Concomitant]
     Active Substance: APIXABAN
     Indication: Anticoagulant therapy

REACTIONS (5)
  - Disease progression [Fatal]
  - Pneumonia [Unknown]
  - Hypokalaemia [Unknown]
  - Asthenia [Unknown]
  - Off label use [Recovered/Resolved]
